FAERS Safety Report 7044609-8 (Version None)
Quarter: 2010Q3

REPORT INFORMATION
  Report Type: 
  Country: None (occurrence: None)
  Receive Date: 20100929
  Receipt Date: 20100715
  Transmission Date: 20110219
  Serious: No
  Sender: FDA-Public Use
  Company Number: US-WYE-H16249410

PATIENT
  Age: 46 Year
  Sex: Male
  Weight: 118.04 kg

DRUGS (5)
  1. PRISTIQ [Suspect]
     Indication: DEPRESSION
     Dosage: 75 MG 1X PER 1 DAY, ORAL; 50 MG 2X PER 1 DAY, ORAL
     Route: 048
     Dates: start: 20100712
  2. LAMICTAL [Concomitant]
  3. LITHIUM CARBONATE [Concomitant]
  4. GEODON [Concomitant]
  5. SEROQUEL [Concomitant]

REACTIONS (1)
  - HEADACHE [None]
